FAERS Safety Report 22279136 (Version 2)
Quarter: 2023Q2

REPORT INFORMATION
  Report Type: Spontaneous
  Country: US (occurrence: US)
  Receive Date: 20230503
  Receipt Date: 20230608
  Transmission Date: 20230721
  Serious: Yes (Life-Threatening, Hospitalization)
  Sender: FDA-Public Use
  Company Number: US-PFIZER INC-PV202300065671

PATIENT
  Age: 90 Year
  Sex: Female

DRUGS (2)
  1. CIBINQO [Suspect]
     Active Substance: ABROCITINIB
     Indication: Pruritus
     Dosage: 100 MG, DAILY
     Route: 048
     Dates: start: 20230220, end: 20230424
  2. CIBINQO [Suspect]
     Active Substance: ABROCITINIB
     Indication: Dermatitis atopic

REACTIONS (3)
  - Pneumonia [Recovered/Resolved]
  - Sepsis [Recovered/Resolved]
  - Urinary tract infection [Recovered/Resolved]

NARRATIVE: CASE EVENT DATE: 20230101
